FAERS Safety Report 6823287-4 (Version None)
Quarter: 2010Q3

REPORT INFORMATION
  Report Type: 
  Country: None (occurrence: None)
  Receive Date: 20100708
  Receipt Date: 20100630
  Transmission Date: 20110219
  Serious: Yes (Other)
  Sender: FDA-Public Use
  Company Number: GR-PFIZER INC-2010070122

PATIENT
  Age: 18 Year
  Sex: Female

DRUGS (4)
  1. LINEZOLID [Suspect]
     Indication: PNEUMONIA STAPHYLOCOCCAL
  2. CEFTRIAXONE [Suspect]
     Indication: PNEUMONIA STAPHYLOCOCCAL
  3. CIPROFLOXACIN [Suspect]
     Indication: PNEUMONIA STAPHYLOCOCCAL
  4. HYDROCORTISONE [Suspect]
     Indication: PNEUMONIA STAPHYLOCOCCAL

REACTIONS (1)
  - DRUG INEFFECTIVE [None]
